FAERS Safety Report 18720437 (Version 1)
Quarter: 2021Q1

REPORT INFORMATION
  Report Type: Report from Study
  Country: US (occurrence: US)
  Receive Date: 20210108
  Receipt Date: 20210108
  Transmission Date: 20210419
  Serious: No
  Sender: FDA-Public Use
  Company Number: US-IGSA-BIG0012706

PATIENT
  Sex: Male
  Weight: 75 kg

DRUGS (1)
  1. GAMUNEX?C [Suspect]
     Active Substance: HUMAN IMMUNOGLOBULIN G
     Indication: CHRONIC INFLAMMATORY DEMYELINATING POLYRADICULONEUROPATHY
     Dosage: UNK UNK, Q.2WK.
     Route: 042
     Dates: end: 202001

REACTIONS (1)
  - Rash [Recovered/Resolved]
